FAERS Safety Report 17193419 (Version 1)
Quarter: 2019Q4

REPORT INFORMATION
  Report Type: Report from Study
  Country: CA (occurrence: CA)
  Receive Date: 20191223
  Receipt Date: 20191223
  Transmission Date: 20200122
  Serious: Yes (Other)
  Sender: FDA-Public Use
  Company Number: CA-JNJFOC-20190908432

PATIENT
  Age: 43 Year
  Sex: Female
  Weight: 77.11 kg

DRUGS (2)
  1. STELARA [Suspect]
     Active Substance: USTEKINUMAB
     Route: 058
     Dates: start: 20121229
  2. STELARA [Suspect]
     Active Substance: USTEKINUMAB
     Indication: CROHN^S DISEASE
     Route: 058
     Dates: start: 20151229

REACTIONS (6)
  - Blood pressure increased [Unknown]
  - Intestinal resection [Unknown]
  - Tachycardia [Unknown]
  - Erythema [Unknown]
  - Crohn^s disease [Unknown]
  - Post procedural diarrhoea [Recovering/Resolving]

NARRATIVE: CASE EVENT DATE: 2019
